FAERS Safety Report 21722478 (Version 1)
Quarter: 2022Q4

REPORT INFORMATION
  Report Type: Spontaneous
  Country: US (occurrence: None)
  Receive Date: 20221212
  Receipt Date: 20221212
  Transmission Date: 20230112
  Serious: Yes (unspecified)
  Sender: FDA-Public Use
  Company Number: None

PATIENT
  Age: 31 Year
  Sex: Female
  Weight: 49.9 kg

DRUGS (3)
  1. INAPSINE [Suspect]
     Active Substance: DROPERIDOL
     Indication: Migraine
     Route: 042
     Dates: start: 20221129, end: 20221129
  2. INAPSINE [Suspect]
     Active Substance: DROPERIDOL
     Indication: Nausea
  3. TORADOL [Suspect]
     Active Substance: KETOROLAC TROMETHAMINE

REACTIONS (12)
  - Feeling of body temperature change [None]
  - Anxiety [None]
  - Palpitations [None]
  - Muscle tightness [None]
  - Extrapyramidal disorder [None]
  - Akathisia [None]
  - Hangover [None]
  - Migraine [None]
  - Injury [None]
  - Headache [None]
  - Dyskinesia [None]
  - Discomfort [None]

NARRATIVE: CASE EVENT DATE: 20221129
